FAERS Safety Report 4443231-7 (Version None)
Quarter: 2004Q3

REPORT INFORMATION
  Report Type: 
  Country: None (occurrence: None)
  Receive Date: 20040901
  Receipt Date: 20040817
  Transmission Date: 20050211
  Serious: Yes (Hospitalization)
  Sender: FDA-Public Use
  Company Number: 04P-163-0249495-00

PATIENT
  Sex: Male

DRUGS (5)
  1. ZYFLO [Suspect]
     Indication: BRONCHIAL DYSPLASIA
     Dosage: 600 MG, 4 IN 1 D
     Dates: start: 20030829, end: 20040317
  2. ATORVASTATIN CALCIUM [Concomitant]
  3. FLOMAX [Concomitant]
  4. AMLODIPINE BESYLATE [Concomitant]
  5. ASPIRIN [Concomitant]

REACTIONS (12)
  - ACUTE CORONARY SYNDROME [None]
  - ARRHYTHMIA [None]
  - ATRIAL FIBRILLATION [None]
  - BUNDLE BRANCH BLOCK LEFT [None]
  - CARDIOMEGALY [None]
  - DIZZINESS [None]
  - FATIGUE [None]
  - HYPERHIDROSIS [None]
  - NAUSEA [None]
  - PULMONARY CONGESTION [None]
  - TACHYCARDIA [None]
  - VISION BLURRED [None]
